FAERS Safety Report 9163299 (Version 1)
Quarter: 2013Q1

REPORT INFORMATION
  Report Type: Spontaneous
  Country: US (occurrence: US)
  Receive Date: 20130314
  Receipt Date: 20130314
  Transmission Date: 20140127
  Serious: Yes (Other)
  Sender: FDA-Public Use
  Company Number: US-PFIZER INC-2012261750

PATIENT
  Age: 66 Year
  Sex: Male
  Weight: 88.44 kg

DRUGS (2)
  1. LYRICA [Suspect]
     Indication: NEUROPATHY PERIPHERAL
     Dosage: UNK
     Route: 048
     Dates: start: 2005
  2. LYRICA [Suspect]
     Dosage: 300 MG, 4X/DAY
     Route: 048

REACTIONS (2)
  - Back disorder [Recovering/Resolving]
  - Incorrect dose administered [Unknown]
